FAERS Safety Report 24311368 (Version 1)
Quarter: 2024Q3

REPORT INFORMATION
  Report Type: Spontaneous
  Country: IN (occurrence: IN)
  Receive Date: 20240912
  Receipt Date: 20240912
  Transmission Date: 20241017
  Serious: Yes (Other)
  Sender: MYLAN
  Company Number: IN-MYLANLABS-2024M1082507

PATIENT
  Sex: Female

DRUGS (29)
  1. METHOTREXATE [Suspect]
     Active Substance: METHOTREXATE
     Indication: B-cell type acute leukaemia
     Dosage: UNK, AS A PART OF BFM 2002 PROTOCOL
     Route: 065
  2. METHOTREXATE [Suspect]
     Active Substance: METHOTREXATE
     Dosage: UNK, AS A PART OF CONSOLIDATION PHASE OF BFM 2002 PROTOCOL
     Route: 065
  3. CYTARABINE [Suspect]
     Active Substance: CYTARABINE
     Indication: B-cell type acute leukaemia
     Dosage: UNK, AS A PART OF BFM 2002 PROTOCOL
     Route: 065
  4. CYTARABINE [Suspect]
     Active Substance: CYTARABINE
     Dosage: UNK, AS A PART OF CONSOLIDATION PHASE OF BFM 2002 PROTOCOL
     Route: 065
  5. ETOPOSIDE [Suspect]
     Active Substance: ETOPOSIDE
     Indication: B-cell type acute leukaemia
     Dosage: UNK, AS A PART OF BFM 2002 PROTOCOL
     Route: 065
  6. ETOPOSIDE [Suspect]
     Active Substance: ETOPOSIDE
     Dosage: UNK, AS A PART OF CONSOLIDATION PHASE OF BFM 2002 PROTOCOL
     Route: 065
  7. DOXORUBICIN [Suspect]
     Active Substance: DOXORUBICIN
     Indication: B-cell type acute leukaemia
     Dosage: UNK, AS A PART OF BFM 2002 PROTOCOL
     Route: 065
  8. DOXORUBICIN [Suspect]
     Active Substance: DOXORUBICIN
     Dosage: UNK, AS A PART OF CONSOLIDATION PHASE OF BFM 2002 PROTOCOL
     Route: 065
  9. MERCAPTOPURINE [Suspect]
     Active Substance: MERCAPTOPURINE
     Indication: B-cell type acute leukaemia
     Dosage: UNK, AS A PART OF BFM 2002 PROTOCOL
     Route: 065
  10. MERCAPTOPURINE [Suspect]
     Active Substance: MERCAPTOPURINE
     Dosage: UNK, AS A PART OF CONSOLIDATION PHASE OF BFM 2002 PROTOCOL
     Route: 065
  11. PONATINIB [Suspect]
     Active Substance: PONATINIB
     Indication: B-cell type acute leukaemia
     Dosage: UNK
     Route: 065
  12. VINCRISTINE [Suspect]
     Active Substance: VINCRISTINE
     Indication: B-cell type acute leukaemia
     Dosage: UNK, AS A PART OF BFM 2002 PROTOCOL
     Route: 065
  13. VINCRISTINE [Suspect]
     Active Substance: VINCRISTINE
     Dosage: UNK, AS A PART OF CONSOLIDATION PHASE OF BFM 2002 PROTOCOL
     Route: 065
  14. ASPARAGINASE [Suspect]
     Active Substance: ASPARAGINASE
     Indication: B-cell type acute leukaemia
     Dosage: UNK, AS A PART OF BFM 2002 PROTOCOL
     Route: 065
  15. ASPARAGINASE [Suspect]
     Active Substance: ASPARAGINASE
     Dosage: UNK, AS A PART OF CONSOLIDATION PHASE OF BFM 2002 PROTOCOL
     Route: 065
  16. CYCLOPHOSPHAMIDE [Suspect]
     Active Substance: CYCLOPHOSPHAMIDE
     Indication: B-cell type acute leukaemia
     Dosage: UNK, AS A PART OF BFM 2002 PROTOCOL
     Route: 065
  17. CYCLOPHOSPHAMIDE [Suspect]
     Active Substance: CYCLOPHOSPHAMIDE
     Dosage: UNK, AS A PART OF CONSOLIDATION PHASE OF BFM 2002 PROTOCOL
     Route: 065
  18. THIOGUANINE [Suspect]
     Active Substance: THIOGUANINE
     Indication: B-cell type acute leukaemia
     Dosage: UNK, AS A PART OF BFM 2002 PROTOCOL
     Route: 065
  19. THIOGUANINE [Suspect]
     Active Substance: THIOGUANINE
     Dosage: UNK, AS A PART OF CONSOLIDATION PHASE OF BFM 2002 PROTOCOL
     Route: 065
  20. DEXAMETHASONE [Suspect]
     Active Substance: DEXAMETHASONE
     Indication: B-cell type acute leukaemia
     Dosage: UNK, AS A PART OF BFM 2002 PROTOCOL
     Route: 065
  21. DEXAMETHASONE [Suspect]
     Active Substance: DEXAMETHASONE
     Dosage: UNK, AS A PART OF CONSOLIDATION PHASE OF BFM 2002 PROTOCOL
     Route: 065
  22. IFOSFAMIDE [Suspect]
     Active Substance: IFOSFAMIDE
     Indication: B-cell type acute leukaemia
     Dosage: UNK, AS A PART OF BFM 2002 PROTOCOL
     Route: 065
  23. IFOSFAMIDE [Suspect]
     Active Substance: IFOSFAMIDE
     Dosage: UNK, AS A PART OF CONSOLIDATION PHASE OF BFM 2002 PROTOCOL
     Route: 065
  24. PREDNISOLONE [Suspect]
     Active Substance: PREDNISOLONE
     Indication: B-cell type acute leukaemia
     Dosage: UNK, AS A PART OF BFM 2002 PROTOCOL
     Route: 065
  25. PREDNISOLONE [Suspect]
     Active Substance: PREDNISOLONE
     Dosage: UNK, AS A PART OF CONSOLIDATION PHASE OF BFM 2002 PROTOCOL
     Route: 065
  26. VINDESINE [Suspect]
     Active Substance: VINDESINE
     Indication: B-cell type acute leukaemia
     Dosage: UNK, AS A PART OF BFM 2002 PROTOCOL
     Route: 065
  27. VINDESINE [Suspect]
     Active Substance: VINDESINE
     Dosage: UNK, AS A PART OF CONSOLIDATION PHASE OF BFM 2002 PROTOCOL
     Route: 065
  28. DAUNORUBICIN [Suspect]
     Active Substance: DAUNORUBICIN
     Indication: B-cell type acute leukaemia
     Dosage: UNK, AS A PART OF BFM 2002 PROTOCOL
     Route: 065
  29. DAUNORUBICIN [Suspect]
     Active Substance: DAUNORUBICIN
     Dosage: UNK, AS A PART OF CONSOLIDATION PHASE OF BFM 2002 PROTOCOL
     Route: 065

REACTIONS (1)
  - Drug ineffective [Unknown]
